FAERS Safety Report 10735685 (Version 1)
Quarter: 2015Q1

REPORT INFORMATION
  Report Type: Spontaneous
  Country: GB (occurrence: None)
  Receive Date: 20150121
  Receipt Date: 20150121
  Transmission Date: 20150721
  Serious: Yes (Other)
  Sender: FDA-Public Use
  Company Number: NL01PV15.38311

PATIENT
  Age: 72 Year
  Sex: Male

DRUGS (4)
  1. FINASTERIDE(FINASTERIDE) [Concomitant]
     Active Substance: FINASTERIDE
  2. PARACETAMOL(PARACETAMOL) [Concomitant]
  3. CODEINE(CODEINE) [Concomitant]
  4. UKNOWN(TAMSULOSIN) [Suspect]
     Active Substance: TAMSULOSIN
     Dates: start: 20141230, end: 20150102

REACTIONS (3)
  - Orthostatic hypotension [None]
  - Dizziness postural [None]
  - Syncope [None]

NARRATIVE: CASE EVENT DATE: 20141230
